FAERS Safety Report 21087840 (Version 1)
Quarter: 2022Q3

REPORT INFORMATION
  Report Type: Spontaneous
  Country: US (occurrence: US)
  Receive Date: 20220715
  Receipt Date: 20220715
  Transmission Date: 20221027
  Serious: Yes (Hospitalization, Other)
  Sender: FDA-Public Use
  Company Number: US-BAYER-2022A094520

PATIENT
  Age: 64 Year
  Sex: Male

DRUGS (1)
  1. ASPIRIN [Suspect]
     Active Substance: ASPIRIN
     Indication: Headache
     Dosage: 81 MG, QD

REACTIONS (5)
  - Melaena [None]
  - Blood loss anaemia [None]
  - Small intestinal haemorrhage [None]
  - Small intestinal haemorrhage [None]
  - Gastritis erosive [None]
